FAERS Safety Report 15464294 (Version 1)
Quarter: 2018Q4

REPORT INFORMATION
  Report Type: Spontaneous
  Country: US (occurrence: US)
  Receive Date: 20181001
  Receipt Date: 20181001
  Transmission Date: 20190204
  Serious: Yes (Life-Threatening)
  Sender: FDA-Public Use
  Company Number: None

PATIENT
  Age: 59 Year
  Sex: Male

DRUGS (1)
  1. NITROFURANTOIN. [Suspect]
     Active Substance: NITROFURANTOIN
     Indication: URINARY TRACT INFECTION
     Route: 048
     Dates: start: 20180517, end: 20180529

REACTIONS (9)
  - Chest pain [None]
  - Drug hypersensitivity [None]
  - Hyperglycaemia [None]
  - Obesity [None]
  - Chest discomfort [None]
  - Respiratory failure [None]
  - Metabolic acidosis [None]
  - Autoimmune haemolytic anaemia [None]
  - Hypotension [None]
